FAERS Safety Report 9162648 (Version 1)
Quarter: 2013Q1

REPORT INFORMATION
  Report Type: Spontaneous
  Country: DE (occurrence: DE)
  Receive Date: 20130314
  Receipt Date: 20130314
  Transmission Date: 20140127
  Serious: Yes (Hospitalization)
  Sender: FDA-Public Use
  Company Number: DE-BRISTOL-MYERS SQUIBB COMPANY-17453531

PATIENT
  Age: 26 Year
  Sex: Female

DRUGS (2)
  1. ABILIFY TABS [Suspect]
     Dosage: REDUCED: 5MG
     Route: 048
  2. VENLAFAXINE HYDROCHLORIDE [Concomitant]

REACTIONS (2)
  - Schizophrenia [Unknown]
  - Blood prolactin increased [Recovered/Resolved]
